FAERS Safety Report 4825237-9 (Version None)
Quarter: 2005Q4

REPORT INFORMATION
  Report Type: 
  Country: None (occurrence: None)
  Receive Date: 20051109
  Receipt Date: 20051101
  Transmission Date: 20060501
  Serious: Yes (Death, Life-Threatening)
  Sender: FDA-Public Use
  Company Number: HQWYE236125OCT05

PATIENT
  Age: 55 Year
  Sex: Female

DRUGS (2)
  1. MYLOTARG [Suspect]
     Indication: ACUTE MYELOID LEUKAEMIA
     Dosage: A SINGLE 7 MG DOSE INTRAVENOUS DRIP; A SINGLE 5MG DOSE INTRAVENOUS DRIP
     Route: 041
     Dates: start: 20050924, end: 20050924
  2. MYLOTARG [Suspect]
     Indication: ACUTE MYELOID LEUKAEMIA
     Dosage: A SINGLE 7 MG DOSE INTRAVENOUS DRIP; A SINGLE 5MG DOSE INTRAVENOUS DRIP
     Route: 041
     Dates: start: 20051008, end: 20051008

REACTIONS (1)
  - VENOOCCLUSIVE LIVER DISEASE [None]
